FAERS Safety Report 9095828 (Version 3)
Quarter: 2013Q1

REPORT INFORMATION
  Report Type: Report from Study
  Country: BE (occurrence: GB)
  Receive Date: 20130220
  Receipt Date: 20130329
  Transmission Date: 20140127
  Serious: Yes (Hospitalization)
  Sender: FDA-Public Use
  Company Number: BE-PFIZER INC-2013063696

PATIENT
  Age: 28 Year
  Sex: Male
  Weight: 68 kg

DRUGS (1)
  1. CRIZOTINIB [Suspect]
     Indication: CLEAR CELL SARCOMA OF SOFT TISSUE
     Dosage: 250 MG, 2X/DAY
     Route: 048
     Dates: start: 20130206, end: 20130211

REACTIONS (5)
  - Dehydration [Not Recovered/Not Resolved]
  - Anaemia [Not Recovered/Not Resolved]
  - Lower respiratory tract infection [Not Recovered/Not Resolved]
  - Hallucination [Unknown]
  - Confusional state [Unknown]
